FAERS Safety Report 19992236 (Version 1)
Quarter: 2021Q4

REPORT INFORMATION
  Report Type: Report from Study
  Country: PH (occurrence: PH)
  Receive Date: 20211025
  Receipt Date: 20211025
  Transmission Date: 20220303
  Serious: Yes (Death)
  Sender: FDA-Public Use
  Company Number: 2021A782181

PATIENT
  Age: 21448 Day
  Sex: Female

DRUGS (1)
  1. IRESSA [Suspect]
     Active Substance: GEFITINIB
     Indication: Lung neoplasm malignant
     Route: 048
     Dates: start: 202005

REACTIONS (3)
  - Metastases to central nervous system [Fatal]
  - Decreased appetite [Unknown]
  - Dysgeusia [Unknown]

NARRATIVE: CASE EVENT DATE: 20211014
